FAERS Safety Report 9646238 (Version 1)
Quarter: 2013Q4

REPORT INFORMATION
  Report Type: Spontaneous
  Country: US (occurrence: US)
  Receive Date: 20131025
  Receipt Date: 20131025
  Transmission Date: 20140711
  Serious: Yes (Other)
  Sender: FDA-Public Use
  Company Number: US-ELI_LILLY_AND_COMPANY-US201310004934

PATIENT
  Sex: Female

DRUGS (2)
  1. HUMALOG LISPRO [Suspect]
     Indication: TYPE 2 DIABETES MELLITUS
     Dosage: UNK
     Route: 058
     Dates: start: 2003
  2. NUVIGIL [Concomitant]
     Indication: SLEEP APNOEA SYNDROME

REACTIONS (9)
  - Brain neoplasm [Unknown]
  - Hypoglycaemic seizure [Unknown]
  - Hernia [Unknown]
  - Cataract [Unknown]
  - Sleep apnoea syndrome [Unknown]
  - Carpal tunnel syndrome [Unknown]
  - Nephrolithiasis [Unknown]
  - Renal cyst [Unknown]
  - Tooth disorder [Unknown]
